FAERS Safety Report 7235119-3 (Version None)
Quarter: 2011Q1

REPORT INFORMATION
  Report Type: 
  Country: None (occurrence: None)
  Receive Date: 20110120
  Receipt Date: 20110113
  Transmission Date: 20110831
  Serious: No
  Sender: FDA-Public Use
  Company Number: US-PFIZER INC-2009295459

PATIENT
  Sex: Female

DRUGS (3)
  1. GLUCOTROL [Suspect]
  2. PRISTIQ [Suspect]
  3. LIPITOR [Suspect]

REACTIONS (1)
  - TINNITUS [None]
